FAERS Safety Report 23364994 (Version 1)
Quarter: 2024Q1

REPORT INFORMATION
  Report Type: Spontaneous
  Country: ES (occurrence: ES)
  Receive Date: 20240104
  Receipt Date: 20240104
  Transmission Date: 20240410
  Serious: Yes (Hospitalization, Other)
  Sender: FDA-Public Use
  Company Number: ES-1Globe Health Institute-2023-GH-000062

PATIENT
  Age: 59 Year
  Sex: Male
  Weight: 61.8 kg

DRUGS (8)
  1. IRINOTECAN [Suspect]
     Active Substance: IRINOTECAN
     Indication: Colorectal cancer metastatic
     Dosage: 300 MILLIGRAM, BIWEEKLY
     Route: 042
     Dates: start: 20231127, end: 20231127
  2. BEVACIZUMAB [Suspect]
     Active Substance: BEVACIZUMAB
     Indication: Colorectal cancer metastatic
     Dosage: 310 MILLIGRAM, BIWEEKLY
     Route: 042
     Dates: start: 20231127, end: 20231127
  3. LEUCOVORIN [Suspect]
     Active Substance: LEUCOVORIN\LEUCOVORIN CALCIUM
     Indication: Colorectal cancer metastatic
     Dosage: 668 MILLIGRAM, BIWEEKLY
     Route: 042
     Dates: start: 20231127, end: 20231127
  4. LEUCOVORIN [Suspect]
     Active Substance: LEUCOVORIN\LEUCOVORIN CALCIUM
     Dosage: UNK
  5. NAPABUCASIN [Suspect]
     Active Substance: NAPABUCASIN
     Indication: Colorectal cancer metastatic
     Dosage: 240 MILLIGRAM, TWO TIMES A DAY
     Route: 048
     Dates: start: 20231122, end: 20231202
  6. FLUOROURACIL [Suspect]
     Active Substance: FLUOROURACIL
     Indication: Colorectal cancer metastatic
     Dosage: 668 MILLIGRAM, BIWEEKLY
     Route: 042
     Dates: start: 20231127, end: 20231127
  7. FLUOROURACIL [Suspect]
     Active Substance: FLUOROURACIL
     Dosage: 4008 MILLIGRAM, BIWEEKLY
     Route: 042
     Dates: start: 20231127, end: 20231129
  8. ACETAMINOPHEN [Concomitant]
     Active Substance: ACETAMINOPHEN
     Indication: Pain
     Dosage: 1 GRAM, AS NECESSARY
     Route: 048
     Dates: start: 202311

REACTIONS (1)
  - Enterocolitis [Recovered/Resolved]

NARRATIVE: CASE EVENT DATE: 20231203
